FAERS Safety Report 15335836 (Version 1)
Quarter: 2018Q3

REPORT INFORMATION
  Report Type: Spontaneous
  Country: JP (occurrence: JP)
  Receive Date: 20180830
  Receipt Date: 20180830
  Transmission Date: 20181010
  Serious: Yes (Hospitalization)
  Sender: FDA-Public Use
  Company Number: JP-ELI_LILLY_AND_COMPANY-JP201808008235

PATIENT
  Age: 79 Year
  Sex: Male

DRUGS (24)
  1. BETANIS [Concomitant]
     Active Substance: MIRABEGRON
     Dosage: 50 MG, EACH MORNING
     Route: 048
  2. TAKECAB [Concomitant]
     Active Substance: VONOPRAZAN FUMURATE
     Dosage: 20 MG, EACH MORNING
     Route: 048
  3. NIFEDIPINE. [Concomitant]
     Active Substance: NIFEDIPINE
     Dosage: 20 MG, EACH MORNING
     Route: 048
     Dates: start: 20180802, end: 20180815
  4. MUCOSOLATE L [Concomitant]
     Dosage: 45 MG, EACH EVENING
     Route: 048
  5. HEPARIN [Concomitant]
     Active Substance: HEPARIN SODIUM
     Dosage: 30 ML, DAILY
     Route: 042
     Dates: start: 20180805, end: 20180805
  6. ETHYL ICOSAPENTATE [Concomitant]
     Active Substance: ICOSAPENT ETHYL
     Dosage: 900 MG, BID
     Route: 048
  7. NIFEDIPINE. [Concomitant]
     Active Substance: NIFEDIPINE
     Dosage: 10 MG, BID
     Route: 048
     Dates: start: 20180816
  8. CILOSTAZOL. [Concomitant]
     Active Substance: CILOSTAZOL
     Dosage: 100 MG, BID
     Route: 048
     Dates: start: 20180816
  9. TAZOPIPE [Concomitant]
     Active Substance: PIPERACILLIN SODIUM\TAZOBACTAM SODIUM
     Dosage: 13.5 G, DAILY
     Route: 041
     Dates: start: 20180801, end: 20180802
  10. TAZOPIPE [Concomitant]
     Active Substance: PIPERACILLIN SODIUM\TAZOBACTAM SODIUM
     Dosage: 4.5 G, DAILY
     Route: 041
     Dates: start: 20180803, end: 20180803
  11. HEPARIN [Concomitant]
     Active Substance: HEPARIN SODIUM
     Dosage: 30 ML, DAILY
     Route: 042
     Dates: start: 20180801, end: 20180802
  12. HEPARIN [Concomitant]
     Active Substance: HEPARIN SODIUM
     Dosage: 20 ML, DAILY
     Route: 042
     Dates: start: 20180806, end: 20180809
  13. LAC?B [Concomitant]
     Active Substance: BIFIDOBACTERIUM SPP.
     Dosage: 1 G, TID
     Route: 048
  14. LEVOFLOXACIN                       /01278903/ [Concomitant]
     Active Substance: LEVOFLOXACIN
     Dosage: 500 MG, EACH MORNING
     Route: 048
     Dates: start: 20180806
  15. HEPARIN [Concomitant]
     Active Substance: HEPARIN SODIUM
     Dosage: 20 ML, DAILY
     Route: 042
     Dates: start: 20180803, end: 20180803
  16. NIFEDIPINE. [Concomitant]
     Active Substance: NIFEDIPINE
     Dosage: 30 MG, DAILY
     Route: 048
     Dates: end: 20180801
  17. ZALUTIA 5MG [Suspect]
     Active Substance: TADALAFIL
     Indication: PRODUCT USED FOR UNKNOWN INDICATION
     Dosage: 5 MG, EACH MORNING
     Route: 048
     Dates: start: 20150903, end: 201808
  18. ZALUTIA 5MG [Suspect]
     Active Substance: TADALAFIL
     Dosage: 5 MG, EACH MORNING
     Route: 048
     Dates: start: 201808
  19. HEPARIN [Concomitant]
     Active Substance: HEPARIN SODIUM
     Dosage: 40 ML, DAILY
     Route: 042
     Dates: start: 20180810, end: 20180810
  20. SPIRIVA [Concomitant]
     Active Substance: TIOTROPIUM BROMIDE MONOHYDRATE
     Dosage: 5 UG, DAILY
     Route: 048
  21. HEPARIN [Concomitant]
     Active Substance: HEPARIN SODIUM
     Dosage: 40 ML, DAILY
     Route: 042
     Dates: start: 20180804, end: 20180804
  22. HEPARIN [Concomitant]
     Active Substance: HEPARIN SODIUM
     Dosage: 30 ML, DAILY
     Route: 042
     Dates: start: 20180811, end: 20180817
  23. MEROPENEM                          /01250502/ [Concomitant]
     Active Substance: MEROPENEM
     Dosage: 1 G, DAILY
     Route: 041
     Dates: start: 20180803, end: 20180803
  24. MEROPENEM                          /01250502/ [Concomitant]
     Active Substance: MEROPENEM
     Dosage: 1.5 G, DAILY
     Route: 041
     Dates: start: 20180804, end: 20180817

REACTIONS (2)
  - Pneumonia aspiration [Recovered/Resolved]
  - Chest pain [Recovered/Resolved]

NARRATIVE: CASE EVENT DATE: 20180815
